FAERS Safety Report 8238259-5 (Version None)
Quarter: 2012Q1

REPORT INFORMATION
  Report Type: 
  Country: None (occurrence: None)
  Receive Date: 20120327
  Receipt Date: 20120322
  Transmission Date: 20120608
  Serious: Yes (Other)
  Sender: FDA-Public Use
  Company Number: US-JNJFOC-20120311517

PATIENT
  Age: 16 Year
  Sex: Female

DRUGS (6)
  1. PROAIR HFA [Concomitant]
     Indication: ASTHMA
     Dosage: AS NEEDED
     Route: 055
  2. MOTRIN IB [Suspect]
     Indication: HEADACHE
     Dosage: TWO TABLETS AT NIGHT FOUR TO FIVE TIMES A WEEK FOR THREE TO FOUR YEARS
     Route: 048
  3. BENADRYL [Suspect]
     Indication: MULTIPLE ALLERGIES
     Dosage: TWO KAPGELS NIGHTLY
     Route: 048
     Dates: start: 20080101
  4. BENADRYL [Suspect]
     Indication: MULTIPLE ALLERGIES
     Dosage: TWO ULTRATABS NIGHTLY
     Route: 048
     Dates: start: 20080101
  5. MOTRIN IB [Suspect]
     Indication: PAIN
     Dosage: TWO TABLETS AT NIGHT FOUR TO FIVE TIMES A WEEK FOR THREE TO FOUR YEARS
     Route: 048
  6. ALL OTHER THERAPEUTIC PRODUCTS [Suspect]
     Indication: SKIN ODOUR ABNORMAL
     Route: 061

REACTIONS (1)
  - NEPHROLITHIASIS [None]
